FAERS Safety Report 9769131 (Version 1)
Quarter: 2013Q4

REPORT INFORMATION
  Report Type: Spontaneous
  Country: US (occurrence: None)
  Receive Date: 20131216
  Receipt Date: 20131216
  Transmission Date: 20140711
  Serious: Yes (Other)
  Sender: FDA-Public Use
  Company Number: COL_14829_2013

PATIENT
  Age: 62 Year
  Sex: Female

DRUGS (1)
  1. COLGATE OPTIC WHITE - SPARKLING MINT [Suspect]
     Indication: PRODUCT USED FOR UNKNOWN INDICATION
     Dosage: COVERED HALF OF THE HEAD OF HER TOOTHBRUSH
     Dates: start: 20131117, end: 20131125

REACTIONS (7)
  - Hypersensitivity [None]
  - Lip swelling [None]
  - Feeling hot [None]
  - Swollen tongue [None]
  - Speech disorder [None]
  - Lip dry [None]
  - Cheilitis [None]
